FAERS Safety Report 23942682 (Version 7)
Quarter: 2024Q4

REPORT INFORMATION
  Report Type: Report from Study
  Country: US (occurrence: US)
  Receive Date: 20240605
  Receipt Date: 20241003
  Transmission Date: 20250115
  Serious: Yes (Hospitalization, Other)
  Sender: MERCK
  Company Number: US-009507513-2406USA000445

PATIENT
  Sex: Female
  Weight: 74.83 kg

DRUGS (17)
  1. SOTATERCEPT [Suspect]
     Active Substance: SOTATERCEPT
     Indication: Pulmonary arterial hypertension
     Dosage: VOLUME: 0.5 MILLILITER, Q3W, STRENGTH: 45 MG
     Route: 058
     Dates: start: 20240503, end: 20240503
  2. SOTATERCEPT [Suspect]
     Active Substance: SOTATERCEPT
     Dosage: VOLUME: 1.2 MILLILITER, Q3W; STRENGTH: 60 MG
     Route: 058
     Dates: start: 20240527
  3. REMODULIN [Suspect]
     Active Substance: TREPROSTINIL
     Indication: Pulmonary arterial hypertension
     Dosage: 0.050 MICROGRAM PER KILOGRAM, CONTINUING
     Route: 041
     Dates: start: 20240522
  4. IMODIUM [Suspect]
     Active Substance: LOPERAMIDE HYDROCHLORIDE
     Indication: Diarrhoea
     Dosage: UNKNOWN
     Route: 065
  5. LETAIRIS [Concomitant]
     Active Substance: AMBRISENTAN
  6. ADEMPAS [Concomitant]
     Active Substance: RIOCIGUAT
  7. BUMETANIDE [Concomitant]
     Active Substance: BUMETANIDE
  8. METOLAZONE [Concomitant]
     Active Substance: METOLAZONE
  9. LIPITOR [Concomitant]
     Active Substance: ATORVASTATIN CALCIUM
  10. PEPCID [Concomitant]
     Active Substance: FAMOTIDINE
  11. METOPROLOL SUCCINATE [Concomitant]
     Active Substance: METOPROLOL SUCCINATE
  12. POTASSIUM CHLORIDE [Concomitant]
     Active Substance: POTASSIUM CHLORIDE
     Dosage: EXTENDED RELEASE
  13. FLUTICASONE PROPIONATE [Concomitant]
     Active Substance: FLUTICASONE PROPIONATE
  14. OXYGEN [Concomitant]
     Active Substance: OXYGEN
  15. SPIRONOLACTONE [Concomitant]
     Active Substance: SPIRONOLACTONE
  16. SODIUM CHLORIDE [Concomitant]
     Active Substance: SODIUM CHLORIDE
  17. TYLENOL [Concomitant]
     Active Substance: ACETAMINOPHEN

REACTIONS (23)
  - Central venous catheterisation [Unknown]
  - Ascites [Unknown]
  - Injection site haemorrhage [Unknown]
  - Pelvic discomfort [Unknown]
  - Peripheral swelling [Unknown]
  - Pallor [Unknown]
  - Oedema peripheral [Unknown]
  - Pain in jaw [Unknown]
  - Headache [Unknown]
  - Myalgia [Unknown]
  - Diarrhoea [Unknown]
  - Wheezing [Unknown]
  - Paracentesis [Recovered/Resolved]
  - Abdominal distension [Unknown]
  - Dyspnoea exertional [Unknown]
  - Weight decreased [Not Recovered/Not Resolved]
  - Dyspnoea [Unknown]
  - Gingival bleeding [Unknown]
  - Diarrhoea [Unknown]
  - Myalgia [Unknown]
  - Arthralgia [Unknown]
  - Inappropriate schedule of product administration [Unknown]
  - Incorrect dose administered [Unknown]

NARRATIVE: CASE EVENT DATE: 20240101
